FAERS Safety Report 5086605-6 (Version None)
Quarter: 2006Q3

REPORT INFORMATION
  Report Type: 
  Country: None (occurrence: None)
  Receive Date: 20060818
  Receipt Date: 20060803
  Transmission Date: 20061208
  Serious: Yes (Other)
  Sender: FDA-Public Use
  Company Number: 84555/98

PATIENT
  Sex: 0

DRUGS (1)
  1. POSTINOR-2 [Suspect]
     Indication: CONTRACEPTION
     Dosage: 4 TABLET ORAL
     Route: 048
     Dates: start: 20051105, end: 20051106

REACTIONS (6)
  - ABORTION SPONTANEOUS [None]
  - DRUG EXPOSURE DURING PREGNANCY [None]
  - FOETAL MALFORMATION [None]
  - INAPPROPRIATE SCHEDULE OF DRUG ADMINISTRATION [None]
  - INCORRECT DOSE ADMINISTERED [None]
  - PREGNANCY [None]
